FAERS Safety Report 17614844 (Version 2)
Quarter: 2020Q2

REPORT INFORMATION
  Report Type: Spontaneous
  Country: US (occurrence: US)
  Receive Date: 20200402
  Receipt Date: 20200506
  Transmission Date: 20200713
  Serious: No
  Sender: FDA-Public Use
  Company Number: US-BAYER-2020-045302

PATIENT
  Age: 61 Year
  Sex: Male

DRUGS (6)
  1. NUBEQA [Suspect]
     Active Substance: DAROLUTAMIDE
     Indication: PROSTATE CANCER
     Dosage: 600 MG, BID
     Route: 048
     Dates: start: 20200312
  2. LUPRON [Concomitant]
     Active Substance: LEUPROLIDE ACETATE
  3. VASCEPA [Concomitant]
     Active Substance: ICOSAPENT ETHYL
  4. MONTELUKAST [Concomitant]
     Active Substance: MONTELUKAST SODIUM
  5. ROSUVASTATIN. [Concomitant]
     Active Substance: ROSUVASTATIN
  6. EPIPEN [Concomitant]
     Active Substance: EPINEPHRINE

REACTIONS (1)
  - Fatigue [Not Recovered/Not Resolved]
